FAERS Safety Report 14396941 (Version 1)
Quarter: 2018Q1

REPORT INFORMATION
  Report Type: Spontaneous
  Country: US (occurrence: US)
  Receive Date: 20180116
  Receipt Date: 20180116
  Transmission Date: 20180509
  Serious: No
  Sender: FDA-Public Use
  Company Number: US-ALLERGAN-1750841US

PATIENT

DRUGS (3)
  1. BOTOX [Suspect]
     Active Substance: ONABOTULINUMTOXINA
     Indication: PRODUCT USED FOR UNKNOWN INDICATION
     Dosage: 20 UNITS, UNK
     Route: 030
     Dates: start: 20170504, end: 20170504
  2. JUV?DERM VOLUMA XC [Concomitant]
  3. BOTOX [Suspect]
     Active Substance: ONABOTULINUMTOXINA
     Dosage: 20 UNITS, UNK
     Route: 030
     Dates: start: 20170517, end: 20170517

REACTIONS (6)
  - Erythema [Unknown]
  - Swelling face [Unknown]
  - Eye disorder [Unknown]
  - Brow ptosis [Unknown]
  - Eye swelling [Unknown]
  - Skin mass [Unknown]
